FAERS Safety Report 8178268-8 (Version None)
Quarter: 2012Q1

REPORT INFORMATION
  Report Type: 
  Country: None (occurrence: None)
  Receive Date: 20120126
  Receipt Date: 20111208
  Transmission Date: 20120608
  Serious: No
  Sender: FDA-Public Use
  Company Number: PHHY2011US03319

PATIENT
  Sex: Female

DRUGS (3)
  1. AFINITOR [Suspect]
     Indication: RENAL CANCER
     Dosage: 5 MG, QOD, ORAL : 10 MG, DAILY, ORAL
     Route: 048
     Dates: start: 20101124
  2. AFINITOR [Suspect]
     Indication: RENAL CANCER
     Dosage: 5 MG, QOD, ORAL : 10 MG, DAILY, ORAL
     Route: 048
     Dates: start: 20110613
  3. QBAJEL [Concomitant]

REACTIONS (6)
  - APHTHOUS STOMATITIS [None]
  - HYPERSENSITIVITY [None]
  - MOUTH ULCERATION [None]
  - NAIL DISORDER [None]
  - TONGUE BLISTERING [None]
  - FUNGAL INFECTION [None]
